FAERS Safety Report 7470811-7 (Version None)
Quarter: 2011Q2

REPORT INFORMATION
  Report Type: 
  Country: None (occurrence: None)
  Receive Date: 20110510
  Receipt Date: 20110429
  Transmission Date: 20111010
  Serious: Yes (Hospitalization)
  Sender: FDA-Public Use
  Company Number: US-JNJFOC-20110502650

PATIENT
  Age: 12 Year

DRUGS (2)
  1. EXTRA STRENGTH TYLENOL [Suspect]
     Indication: PRODUCT USED FOR UNKNOWN INDICATION
     Route: 048
  2. EXTRA STRENGTH TYLENOL [Suspect]
     Route: 048

REACTIONS (2)
  - HYPERSENSITIVITY [None]
  - OVERDOSE [None]
